FAERS Safety Report 7020680-4 (Version None)
Quarter: 2010Q3

REPORT INFORMATION
  Report Type: 
  Country: None (occurrence: None)
  Receive Date: 20100929
  Receipt Date: 20100920
  Transmission Date: 20110219
  Serious: Yes (Hospitalization)
  Sender: FDA-Public Use
  Company Number: PHHY2010US54179

PATIENT
  Sex: Male
  Weight: 53.81 kg

DRUGS (9)
  1. EXJADE [Suspect]
     Indication: MYELODYSPLASTIC SYNDROME
     Dosage: 1000 MG DAILY
     Route: 048
     Dates: start: 20090408
  2. EXJADE [Suspect]
     Dosage: 1000 MG DAILY
     Route: 048
     Dates: start: 20100602
  3. EXJADE [Suspect]
     Dosage: UNK
     Dates: start: 20100602
  4. TERAZOSIN HCL [Concomitant]
  5. LEVOTHYROXINE SODIUM [Concomitant]
     Dosage: UNK
  6. COLCHICINE [Concomitant]
  7. SIMVASTATIN [Concomitant]
     Dosage: UNK
  8. PREDNISONE [Concomitant]
  9. BACTRIM DS [Concomitant]

REACTIONS (2)
  - DIARRHOEA [None]
  - DIVERTICULITIS [None]
